FAERS Safety Report 5255295-1 (Version None)
Quarter: 2007Q1

REPORT INFORMATION
  Report Type: 
  Country: None (occurrence: None)
  Receive Date: 20070305
  Receipt Date: 20070301
  Transmission Date: 20070707
  Serious: Yes (Other)
  Sender: FDA-Public Use
  Company Number: US-GLAXOSMITHKLINE-A0635239A

PATIENT
  Sex: Female

DRUGS (1)
  1. FLONASE [Suspect]
     Indication: DRUG USE FOR UNKNOWN INDICATION
     Route: 065
     Dates: start: 20030301

REACTIONS (11)
  - ADVERSE EVENT [None]
  - ALOPECIA [None]
  - FALL [None]
  - GAIT DISTURBANCE [None]
  - LACK OF SATIETY [None]
  - MENOPAUSE [None]
  - MUSCULAR WEAKNESS [None]
  - PITUITARY-DEPENDENT CUSHING'S SYNDROME [None]
  - THIRST [None]
  - URINE ODOUR ABNORMAL [None]
  - WEIGHT INCREASED [None]
